FAERS Safety Report 12353195 (Version 2)
Quarter: 2016Q2

REPORT INFORMATION
  Report Type: Spontaneous
  Country: NZ (occurrence: NZ)
  Receive Date: 20160510
  Receipt Date: 20160513
  Transmission Date: 20160815
  Serious: Yes (Death)
  Sender: FDA-Public Use
  Company Number: NZ-ABBVIE-03P-118-0244249-00

PATIENT
  Age: 22 Year
  Sex: Female

DRUGS (19)
  1. EPILIM [Suspect]
     Active Substance: VALPROATE SODIUM
     Indication: MOOD SWINGS
     Dosage: EVERY NIGHT
     Route: 048
     Dates: start: 20000727, end: 20000729
  2. EPILIM [Suspect]
     Active Substance: VALPROATE SODIUM
     Route: 048
     Dates: start: 20000730, end: 20000803
  3. EPILIM [Suspect]
     Active Substance: VALPROATE SODIUM
     Route: 048
     Dates: start: 20000808, end: 20000912
  4. FLUOXETINE [Suspect]
     Active Substance: FLUOXETINE HYDROCHLORIDE
     Indication: ANXIETY DISORDER
     Route: 048
     Dates: start: 20000321, end: 20000429
  5. FLUOXETINE [Suspect]
     Active Substance: FLUOXETINE HYDROCHLORIDE
     Route: 048
     Dates: start: 20000524, end: 20000912
  6. CLONAZEPAM. [Suspect]
     Active Substance: CLONAZEPAM
     Route: 048
     Dates: start: 20000516, end: 20000605
  7. SANDOMIGRAN [Suspect]
     Active Substance: PIZOTYLINE
     Indication: HEADACHE
     Dosage: AT BEDTIME
     Route: 048
     Dates: end: 20000515
  8. CLONAZEPAM. [Suspect]
     Active Substance: CLONAZEPAM
     Indication: DRUG WITHDRAWAL SYNDROME
     Route: 048
     Dates: start: 20000128, end: 20000320
  9. CLONAZEPAM. [Suspect]
     Active Substance: CLONAZEPAM
     Route: 048
     Dates: start: 20000413, end: 20000515
  10. CLONAZEPAM. [Suspect]
     Active Substance: CLONAZEPAM
     Route: 048
     Dates: start: 20000606, end: 20000717
  11. TEMAZEPAM. [Concomitant]
     Active Substance: TEMAZEPAM
     Indication: PRODUCT USED FOR UNKNOWN INDICATION
     Dates: start: 200001, end: 20000908
  12. FLUOXETINE [Suspect]
     Active Substance: FLUOXETINE HYDROCHLORIDE
     Route: 048
     Dates: start: 20000430, end: 20000523
  13. CLONAZEPAM. [Suspect]
     Active Substance: CLONAZEPAM
     Route: 048
     Dates: start: 20000321, end: 20000412
  14. ZUCLOPENTHIXOL [Concomitant]
     Active Substance: ZUCLOPENTHIXOL
     Indication: PRODUCT USED FOR UNKNOWN INDICATION
     Dosage: EVERY NIGHT
     Dates: start: 20000530, end: 20000703
  15. SANDOMIGRAN [Suspect]
     Active Substance: PIZOTYLINE
     Route: 048
     Dates: start: 20000516, end: 20000912
  16. EPILIM [Suspect]
     Active Substance: VALPROATE SODIUM
     Dosage: 100 MG IN AM; 200 MG IN PM
     Route: 048
     Dates: start: 20000804, end: 20000807
  17. CLONAZEPAM. [Suspect]
     Active Substance: CLONAZEPAM
     Route: 048
     Dates: start: 20000718, end: 20000726
  18. CLONAZEPAM. [Suspect]
     Active Substance: CLONAZEPAM
     Route: 048
     Dates: start: 20000727, end: 20000912
  19. LORAZEPAM. [Concomitant]
     Active Substance: LORAZEPAM
     Indication: PRODUCT USED FOR UNKNOWN INDICATION
     Dosage: 1000 - 2000 MCG
     Dates: start: 19991231, end: 200001

REACTIONS (8)
  - Restlessness [Fatal]
  - Suicidal ideation [Fatal]
  - Anxiety [Fatal]
  - Agitation [Fatal]
  - Weight decreased [Fatal]
  - Drug dependence [Fatal]
  - Depression [Fatal]
  - Mania [Fatal]

NARRATIVE: CASE EVENT DATE: 2000
